FAERS Safety Report 9914747 (Version 2)
Quarter: 2014Q1

REPORT INFORMATION
  Report Type: Spontaneous
  Country: US (occurrence: None)
  Receive Date: 20140210
  Receipt Date: 20140321
  Transmission Date: 20141002
  Serious: No
  Sender: FDA-Public Use
  Company Number: US-145515

PATIENT
  Age: 16 Year
  Sex: Male
  Weight: 71.2 kg

DRUGS (5)
  1. WINRHO SDF LIQUID [Suspect]
     Indication: IMMUNE THROMBOCYTOPENIC PURPURA
     Dosage: (50.55 UG/KG QD INTRAVENOUS BOLUS),
     Route: 040
     Dates: start: 20140121, end: 20140121
  2. BENADRYL [Concomitant]
  3. TYLENOL EXTRA STRENGTH [Concomitant]
  4. VYVANSE [Concomitant]
  5. HYDROCORTISONE [Concomitant]

REACTIONS (7)
  - Chills [None]
  - Pyrexia [None]
  - Blood pressure fluctuation [None]
  - Vomiting [None]
  - Urobilinogen urine [None]
  - Feeling cold [None]
  - Heart rate increased [None]
